FAERS Safety Report 11320445 (Version 1)
Quarter: 2015Q3

REPORT INFORMATION
  Report Type: Spontaneous
  Country: US (occurrence: None)
  Receive Date: 20150728
  Receipt Date: 20150728
  Transmission Date: 20151125
  Serious: No
  Sender: FDA-Public Use
  Company Number: None

PATIENT
  Age: 85 Year
  Sex: Female
  Weight: 68.04 kg

DRUGS (6)
  1. CREAM FOR ITCHES [Concomitant]
  2. DIOVAN [Suspect]
     Active Substance: VALSARTAN
     Indication: THYROIDECTOMY
     Dosage: 1 PILL QD AM MOUTH
     Route: 048
     Dates: start: 2000
  3. DIOVAN [Suspect]
     Active Substance: VALSARTAN
     Indication: BLOOD PRESSURE INCREASED
     Dosage: 1 PILL QD AM MOUTH
     Route: 048
     Dates: start: 2000
  4. B/P MED [Concomitant]
  5. SYNTHROID [Suspect]
     Active Substance: LEVOTHYROXINE SODIUM
     Route: 048
  6. VALSARTAN. [Concomitant]
     Active Substance: VALSARTAN

REACTIONS (5)
  - Asthenia [None]
  - Pruritus [None]
  - Eye disorder [None]
  - Blister [None]
  - Product substitution issue [None]

NARRATIVE: CASE EVENT DATE: 20150626
